FAERS Safety Report 10865889 (Version 2)
Quarter: 2015Q1

REPORT INFORMATION
  Report Type: Report from Study
  Country: US (occurrence: US)
  Receive Date: 20150224
  Receipt Date: 20150304
  Transmission Date: 20150721
  Serious: Yes (Hospitalization, Other)
  Sender: FDA-Public Use
  Company Number: PHEH2015US003350

PATIENT
  Sex: Male

DRUGS (6)
  1. KLONOPIN [Concomitant]
     Active Substance: CLONAZEPAM
     Indication: ANXIETY
     Dosage: UNK
     Route: 065
  2. RISPERIDON [Concomitant]
     Active Substance: RISPERIDONE
     Indication: PSYCHOTIC DISORDER
     Dosage: 3 MG, BID
     Route: 048
  3. ZINC SULFATE [Concomitant]
     Active Substance: ZINC SULFATE\ZINC SULFATE ANHYDROUS
     Indication: HEPATO-LENTICULAR DEGENERATION
     Dosage: UNK
     Route: 065
  4. CLOZARIL [Suspect]
     Active Substance: CLOZAPINE
     Indication: PRODUCT USED FOR UNKNOWN INDICATION
     Dosage: UNK
     Route: 065
  5. CLOZARIL [Suspect]
     Active Substance: CLOZAPINE
     Dosage: 300 MG, QHS
     Route: 065
  6. LITHIUM [Suspect]
     Active Substance: LITHIUM CARBONATE
     Indication: INAPPROPRIATE ANTIDIURETIC HORMONE SECRETION
     Route: 065

REACTIONS (5)
  - Diabetes insipidus [Unknown]
  - Positron emission tomogram abnormal [Recovered/Resolved]
  - Delusion [Recovered/Resolved]
  - Psychiatric decompensation [Unknown]
  - Hallucination [Recovered/Resolved]
